FAERS Safety Report 16463819 (Version 2)
Quarter: 2019Q3

REPORT INFORMATION
  Report Type: Spontaneous
  Country: US (occurrence: US)
  Receive Date: 20190621
  Receipt Date: 20190701
  Transmission Date: 20191004
  Serious: No
  Sender: FDA-Public Use
  Company Number: US-BAYER-2019-114649

PATIENT
  Age: 48 Year
  Sex: Female

DRUGS (2)
  1. MIRENA [Suspect]
     Active Substance: LEVONORGESTREL
     Indication: CONTRACEPTION
     Dosage: 20 MCG/24HR, CONT
     Route: 015
     Dates: start: 2015, end: 20190611
  2. MIRENA [Suspect]
     Active Substance: LEVONORGESTREL
     Indication: CONTRACEPTION

REACTIONS (3)
  - Complication of device removal [Recovered/Resolved]
  - Device breakage [Recovered/Resolved]
  - Device difficult to use [Recovered/Resolved]

NARRATIVE: CASE EVENT DATE: 20190607
